FAERS Safety Report 11384317 (Version 1)
Quarter: 2015Q3

REPORT INFORMATION
  Report Type: Spontaneous
  Country: US (occurrence: US)
  Receive Date: 20150811
  Receipt Date: 20150811
  Transmission Date: 20151125
  Serious: No
  Sender: FDA-Public Use
  Company Number: US-ELI_LILLY_AND_COMPANY-US201011002481

PATIENT
  Age: 50 Year
  Sex: Male

DRUGS (11)
  1. CIALIS [Suspect]
     Active Substance: TADALAFIL
     Indication: ERECTILE DYSFUNCTION
     Dosage: 2.5 MG, DAILY (1/D)
  2. PANTOPRAZOLE [Concomitant]
     Active Substance: PANTOPRAZOLE SODIUM
     Dosage: 40 MG, DAILY (1/D)
  3. CYMBALTA [Concomitant]
     Active Substance: DULOXETINE HYDROCHLORIDE
  4. ALTACE [Concomitant]
     Active Substance: RAMIPRIL
     Dosage: UNK, DAILY (1/D)
  5. GABAPENTIN. [Concomitant]
     Active Substance: GABAPENTIN
     Dosage: 800 MG, 2/D
  6. TOPIRAMATE. [Concomitant]
     Active Substance: TOPIRAMATE
  7. POTASSIUM CHLORIDE. [Concomitant]
     Active Substance: POTASSIUM CHLORIDE
  8. FUROSEMIDE. [Concomitant]
     Active Substance: FUROSEMIDE
     Dosage: 120 MG, 2/D
  9. WARFARIN [Concomitant]
     Active Substance: WARFARIN
     Dosage: 10 MG, DAILY (1/D)
  10. COREG [Concomitant]
     Active Substance: CARVEDILOL
     Dosage: 6.25 MG, 2/D
  11. DIGOXIN. [Concomitant]
     Active Substance: DIGOXIN
     Dosage: UNK, DAILY (1/D)

REACTIONS (2)
  - Drug ineffective [Unknown]
  - Intentional product misuse [Unknown]
